APPROVED DRUG PRODUCT: MOLINDONE HYDROCHLORIDE
Active Ingredient: MOLINDONE HYDROCHLORIDE
Strength: 10MG
Dosage Form/Route: TABLET;ORAL
Application: A090453 | Product #002
Applicant: EPIC PHARMA LLC
Approved: Mar 20, 2015 | RLD: No | RS: No | Type: RX